FAERS Safety Report 13375593 (Version 1)
Quarter: 2017Q1

REPORT INFORMATION
  Report Type: Spontaneous
  Country: GB (occurrence: GB)
  Receive Date: 20170328
  Receipt Date: 20170328
  Transmission Date: 20170429
  Serious: Yes (Other)
  Sender: FDA-Public Use
  Company Number: GB-TORRENT-00015127

PATIENT
  Age: 77 Year
  Sex: Male
  Weight: 110 kg

DRUGS (2)
  1. AMLODIPINE/AMLODIPINE BESYLATE [Suspect]
     Active Substance: AMLODIPINE BESYLATE
  2. ALOPURINOL [Concomitant]
     Active Substance: ALLOPURINOL

REACTIONS (1)
  - Pollakiuria [Not Recovered/Not Resolved]

NARRATIVE: CASE EVENT DATE: 20170306
